FAERS Safety Report 8369151-3 (Version None)
Quarter: 2012Q2

REPORT INFORMATION
  Report Type: 
  Country: None (occurrence: None)
  Receive Date: 20120518
  Receipt Date: 20120507
  Transmission Date: 20120825
  Serious: Yes (Death, Other)
  Sender: FDA-Public Use
  Company Number: FR-GENZYME-CLOF-1002142

PATIENT

DRUGS (8)
  1. CLOFARABINE [Suspect]
     Indication: ACUTE LYMPHOCYTIC LEUKAEMIA RECURRENT
     Dosage: 32 MG/M2, QD
     Route: 065
     Dates: start: 20090911
  2. METHOTREXATE [Concomitant]
     Indication: ACUTE LYMPHOCYTIC LEUKAEMIA RECURRENT
     Dosage: 15 MG/M2, QD
     Route: 037
     Dates: start: 20090910
  3. MITOXANTRONE [Concomitant]
     Indication: ACUTE LYMPHOCYTIC LEUKAEMIA RECURRENT
     Dosage: 8 MG/M2, QD
     Route: 065
     Dates: start: 20090911
  4. HYDROCORTISONE HEMISUCCINATE [Concomitant]
     Indication: ACUTE LYMPHOCYTIC LEUKAEMIA RECURRENT
     Dosage: 40 MG/M2, QD
     Route: 037
     Dates: start: 20090910
  5. DEXAMETHASONE [Concomitant]
     Indication: ACUTE LYMPHOCYTIC LEUKAEMIA RECURRENT
     Dosage: 20 MG/M2, QD
     Route: 065
     Dates: start: 20090911
  6. ETOPOSIDE [Concomitant]
     Indication: ACUTE LYMPHOCYTIC LEUKAEMIA RECURRENT
     Dosage: 150 MG/M2, QD
     Route: 065
     Dates: start: 20090911
  7. ELSPAR [Concomitant]
     Indication: ACUTE LYMPHOCYTIC LEUKAEMIA RECURRENT
     Dosage: 8000 IU/M2, QD
     Route: 065
     Dates: start: 20090911
  8. CYTARABINE [Concomitant]
     Indication: ACUTE LYMPHOCYTIC LEUKAEMIA RECURRENT
     Dosage: 40 MG/M2, QD
     Route: 037
     Dates: start: 20090910

REACTIONS (5)
  - BRONCHOPULMONARY ASPERGILLOSIS [None]
  - SUBCUTANEOUS ABSCESS [None]
  - DEATH [None]
  - SEPTIC SHOCK [None]
  - BLOOD BILIRUBIN INCREASED [None]
